FAERS Safety Report 5743650-2 (Version None)
Quarter: 2008Q2

REPORT INFORMATION
  Report Type: 
  Country: None (occurrence: None)
  Receive Date: 20080516
  Receipt Date: 20080508
  Transmission Date: 20081010
  Serious: Yes (Death, Life-Threatening, Hospitalization)
  Sender: FDA-Public Use
  Company Number: 000895

PATIENT
  Age: 34 Year
  Sex: Male

DRUGS (8)
  1. BUSULFEX [Suspect]
     Indication: STEM CELL TRANSPLANT
     Dosage: 40.28 ML
     Dates: start: 20071020, end: 20071021
  2. CYCLOPHOSPHAMIDE [Concomitant]
  3. DOXORUBICIN HCL [Concomitant]
  4. FLUDARABINE PHOSPHATE [Concomitant]
  5. PHENYTOIN [Concomitant]
  6. NEUPOGEN [Concomitant]
  7. METHOTREXATE [Concomitant]
  8. TACROLIMUS [Concomitant]

REACTIONS (25)
  - ANOREXIA [None]
  - ANURIA [None]
  - BLADDER SPASM [None]
  - BLOOD PRESSURE DECREASED [None]
  - CACHEXIA [None]
  - CONDITION AGGRAVATED [None]
  - CONTINUOUS HAEMODIAFILTRATION [None]
  - CORD BLOOD TRANSPLANT THERAPY [None]
  - CYSTITIS [None]
  - DIARRHOEA [None]
  - GRAM STAIN POSITIVE [None]
  - HAEMATURIA [None]
  - JAUNDICE [None]
  - LYMPHOMA [None]
  - MALAISE [None]
  - NAUSEA [None]
  - OLIGURIA [None]
  - PNEUMONIA CRYPTOCOCCAL [None]
  - POLLAKIURIA [None]
  - PULMONARY ALVEOLAR HAEMORRHAGE [None]
  - RENAL FAILURE ACUTE [None]
  - RESPIRATORY FAILURE [None]
  - SEPSIS [None]
  - STOMATITIS [None]
  - TUMOUR FLARE [None]
